FAERS Safety Report 19311930 (Version 1)
Quarter: 2021Q2

REPORT INFORMATION
  Report Type: Spontaneous
  Country: AE (occurrence: AE)
  Receive Date: 20210527
  Receipt Date: 20210527
  Transmission Date: 20210717
  Serious: Yes (Hospitalization, Other)
  Sender: FDA-Public Use
  Company Number: AE-IPCA LABORATORIES LIMITED-IPC-2021-AE-001042

PATIENT

DRUGS (4)
  1. HYDROXYZINE [Suspect]
     Active Substance: HYDROXYZINE HYDROCHLORIDE
     Indication: PRODUCT USED FOR UNKNOWN INDICATION
     Dosage: UNK
     Route: 065
  2. METOPROLOL TARTRATE. [Suspect]
     Active Substance: METOPROLOL TARTRATE
     Dosage: 75 MILLIGRAM
     Route: 065
  3. LORAZEPAM. [Suspect]
     Active Substance: LORAZEPAM
     Indication: PRODUCT USED FOR UNKNOWN INDICATION
     Dosage: UNK
     Route: 065
  4. METOPROLOL TARTRATE. [Suspect]
     Active Substance: METOPROLOL TARTRATE
     Indication: PRODUCT USED FOR UNKNOWN INDICATION
     Dosage: 7500 MILLIGRAM
     Route: 065

REACTIONS (9)
  - Acute kidney injury [Unknown]
  - Somnolence [Unknown]
  - Unresponsive to stimuli [Unknown]
  - Delirium [Unknown]
  - Atrioventricular block complete [Unknown]
  - Overdose [Unknown]
  - Metabolic acidosis [Unknown]
  - Shock [Unknown]
  - Hyperinsulinaemic hypoglycaemia [Recovering/Resolving]
